FAERS Safety Report 15339294 (Version 1)
Quarter: 2018Q3

REPORT INFORMATION
  Report Type: Spontaneous
  Country: US (occurrence: US)
  Receive Date: 20180831
  Receipt Date: 20180831
  Transmission Date: 20181010
  Serious: Yes (Hospitalization, Other)
  Sender: FDA-Public Use
  Company Number: US-TEVA-2018-US-950566

PATIENT

DRUGS (2)
  1. COPAXONE [Suspect]
     Active Substance: GLATIRAMER ACETATE
     Dosage: PFS
     Route: 065
     Dates: start: 20160222, end: 201708
  2. COPAXONE [Suspect]
     Active Substance: GLATIRAMER ACETATE
     Dosage: PFS
     Route: 065
     Dates: start: 20140614, end: 20151216

REACTIONS (2)
  - Spinal cord compression [Unknown]
  - Hypoaesthesia [Unknown]

NARRATIVE: CASE EVENT DATE: 2014
